FAERS Safety Report 8586016-2 (Version None)
Quarter: 2012Q3

REPORT INFORMATION
  Report Type: 
  Country: None (occurrence: None)
  Receive Date: 20120810
  Receipt Date: 20120806
  Transmission Date: 20120928
  Serious: Yes (Hospitalization)
  Sender: FDA-Public Use
  Company Number: US-ACTELION-A-NJ2012-69824

PATIENT
  Age: 81 Year
  Sex: Female

DRUGS (16)
  1. VENTAVIS [Suspect]
     Dosage: UNK
     Route: 055
     Dates: start: 20120419, end: 20120515
  2. CARDIZEM [Concomitant]
  3. SPIRONOLACTONE [Concomitant]
  4. COZAAR [Concomitant]
  5. CALCIUM [Concomitant]
  6. PEPCID [Concomitant]
  7. COREG [Concomitant]
  8. TRICOR [Concomitant]
  9. ASPIRIN [Concomitant]
  10. LASIX [Concomitant]
  11. ALLEGRA [Concomitant]
  12. VENTAVIS [Suspect]
     Indication: PULMONARY ARTERIAL HYPERTENSION
     Dosage: 5 ?G, 6 TIMES DAILY
     Route: 055
     Dates: start: 20120516, end: 20120724
  13. ALLOPURINOL [Concomitant]
  14. LIPITOR [Concomitant]
  15. PRADAXA [Concomitant]
  16. IRON [Concomitant]

REACTIONS (8)
  - ASTHENIA [None]
  - URINARY TRACT INFECTION [None]
  - COUGH [None]
  - MITRAL VALVE INCOMPETENCE [None]
  - OEDEMA PERIPHERAL [None]
  - FATIGUE [None]
  - CARDIAC FAILURE CONGESTIVE [None]
  - DYSPNOEA [None]
